FAERS Safety Report 21440168 (Version 1)
Quarter: 2022Q4

REPORT INFORMATION
  Report Type: Report from Study
  Country: US (occurrence: US)
  Receive Date: 20221011
  Receipt Date: 20221011
  Transmission Date: 20230113
  Serious: No
  Sender: FDA-Public Use
  Company Number: US-NOVARTISTESTPH-NVSC2022US229049

PATIENT
  Sex: Female

DRUGS (3)
  1. XIIDRA [Suspect]
     Active Substance: LIFITEGRAST
     Indication: Product used for unknown indication
     Dosage: 5 ML
     Route: 047
  2. XIIDRA [Suspect]
     Active Substance: LIFITEGRAST
     Dosage: 5 ML
     Route: 047
  3. XIIDRA [Suspect]
     Active Substance: LIFITEGRAST
     Dosage: 5 ML
     Route: 047

REACTIONS (1)
  - Eye irritation [Unknown]
